FAERS Safety Report 8512540 (Version 2)
Quarter: 2013Q1

REPORT INFORMATION
  Report Type: Spontaneous
  Country: US (occurrence: US)
  Receive Date: 20120413
  Receipt Date: 20130326
  Transmission Date: 20140127
  Serious: No
  Sender: FDA-Public Use
  Company Number: US-ASTRAZENECA-2012SE01798

PATIENT
  Age: 50 Year
  Sex: Female

DRUGS (3)
  1. NEXIUM [Suspect]
     Route: 048
  2. TUMS [Concomitant]
  3. BENTYL [Concomitant]

REACTIONS (6)
  - Dyspepsia [Unknown]
  - Gastrooesophageal reflux disease [Unknown]
  - Oesophagitis [Unknown]
  - Sleep disorder due to a general medical condition [Unknown]
  - Abdominal discomfort [Unknown]
  - Drug dose omission [Unknown]
